FAERS Safety Report 10156693 (Version 1)
Quarter: 2014Q2

REPORT INFORMATION
  Report Type: Spontaneous
  Country: US (occurrence: None)
  Receive Date: 20140505
  Receipt Date: 20140505
  Transmission Date: 20141212
  Serious: Yes (Other)
  Sender: FDA-Public Use
  Company Number: 1364688

PATIENT
  Age: 55 Year
  Sex: Male
  Weight: 72.58 kg

DRUGS (3)
  1. DIPHENHYDRAMINE [Suspect]
     Indication: PRURITUS
     Dosage: 1 PACKET
     Route: 048
     Dates: start: 20140414
  2. GABAPENTIN [Concomitant]
  3. TRAMADOL [Concomitant]

REACTIONS (6)
  - Hypoaesthesia oral [None]
  - Hyperhidrosis [None]
  - Dyspnoea [None]
  - Vomiting [None]
  - Lip swelling [None]
  - Hypersensitivity [None]
